FAERS Safety Report 24365814 (Version 1)
Quarter: 2024Q3

REPORT INFORMATION
  Report Type: Spontaneous
  Country: US (occurrence: US)
  Receive Date: 20240926
  Receipt Date: 20240926
  Transmission Date: 20241016
  Serious: Yes (Other)
  Sender: BAYER
  Company Number: US-BAYER-2024A133985

PATIENT

DRUGS (2)
  1. EUCALYPTOL\MENTHOL\ROSEMARY OIL [Suspect]
     Active Substance: EUCALYPTOL\MENTHOL\ROSEMARY OIL
     Dosage: 4 INHALATION QD
     Route: 065
  2. AFRIN ORIGINAL NASAL [Suspect]
     Active Substance: OXYMETAZOLINE HYDROCHLORIDE
     Indication: Nasal congestion
     Dosage: 3 TO 4 TIME PER DAY
     Route: 045
     Dates: start: 1994

REACTIONS (2)
  - Drug dependence [Unknown]
  - Therapeutic response unexpected [None]
